FAERS Safety Report 4423093-4 (Version None)
Quarter: 2004Q3

REPORT INFORMATION
  Report Type: 
  Country: None (occurrence: None)
  Receive Date: 20040713
  Receipt Date: 20030904
  Transmission Date: 20050211
  Serious: No
  Sender: FDA-Public Use
  Company Number: PHEH2003US08063

PATIENT
  Sex: Female

DRUGS (4)
  1. ELIDEL [Suspect]
     Indication: DERMATITIS CONTACT
     Dosage: TOPICAL
     Route: 061
     Dates: start: 20030801, end: 20030801
  2. PREMARIN [Concomitant]
  3. SYNTHROID [Concomitant]
  4. NEURONTIN [Concomitant]

REACTIONS (4)
  - APPLICATION SITE BURNING [None]
  - APPLICATION SITE ERYTHEMA [None]
  - APPLICATION SITE SWELLING [None]
  - HERPES ZOSTER [None]
